FAERS Safety Report 25428279 (Version 2)
Quarter: 2025Q2

REPORT INFORMATION
  Report Type: Spontaneous
  Country: JP (occurrence: JP)
  Receive Date: 20250612
  Receipt Date: 20250620
  Transmission Date: 20250716
  Serious: Yes (Hospitalization, Other)
  Sender: ARGENX BVBA
  Company Number: JP-ARGENX-2025-ARGX-JP005300AA

PATIENT

DRUGS (3)
  1. EFGARTIGIMOD ALFA\HYALURONIDASE-QVFC [Suspect]
     Active Substance: EFGARTIGIMOD ALFA\HYALURONIDASE-QVFC
     Indication: Chronic inflammatory demyelinating polyradiculoneuropathy
     Route: 058
     Dates: start: 20250412, end: 20250419
  2. NEORAL [Concomitant]
     Active Substance: CYCLOSPORINE
     Indication: Chronic inflammatory demyelinating polyradiculoneuropathy
     Route: 048
  3. PREDNISOLONE [Concomitant]
     Active Substance: PREDNISOLONE
     Indication: Chronic inflammatory demyelinating polyradiculoneuropathy
     Route: 048

REACTIONS (7)
  - Chronic inflammatory demyelinating polyradiculoneuropathy [Recovered/Resolved]
  - Quadriplegia [Unknown]
  - Pneumonia aspiration [Unknown]
  - Dysphagia [Unknown]
  - Hyponatraemia [Unknown]
  - Therapy cessation [Unknown]
  - Therapeutic product effect incomplete [Unknown]

NARRATIVE: CASE EVENT DATE: 20250419
